FAERS Safety Report 9828160 (Version 1)
Quarter: 2014Q1

REPORT INFORMATION
  Report Type: Spontaneous
  Country: US (occurrence: US)
  Receive Date: 20140117
  Receipt Date: 20140117
  Transmission Date: 20141002
  Serious: No
  Sender: FDA-Public Use
  Company Number: US-GILEAD-2011-0037534

PATIENT
  Sex: Male

DRUGS (1)
  1. ATRIPLA [Suspect]
     Indication: HIV INFECTION
     Dates: start: 2009, end: 2011

REACTIONS (4)
  - Diarrhoea [Unknown]
  - Abnormal dreams [Not Recovered/Not Resolved]
  - Depression [Recovering/Resolving]
  - Anxiety [Unknown]
